FAERS Safety Report 11801979 (Version 1)
Quarter: 2015Q4

REPORT INFORMATION
  Report Type: Other
  Country: DE (occurrence: DE)
  Receive Date: 20151204
  Receipt Date: 20151204
  Transmission Date: 20160305
  Serious: Yes (Hospitalization)
  Sender: FDA-Public Use
  Company Number: DE-MYLANLABS-2015M1041626

PATIENT

DRUGS (4)
  1. DOMINAL                            /00002701/ [Concomitant]
     Active Substance: ASPIRIN
     Dosage: 40 MG, QD
     Route: 048
     Dates: start: 201312
  2. VENLAFAXINE [Suspect]
     Active Substance: VENLAFAXINE HYDROCHLORIDE
     Dosage: 225 MG, QD
     Route: 048
     Dates: start: 201312, end: 20140731
  3. DOXEPIN [Suspect]
     Active Substance: DOXEPIN
     Dosage: 75 MG, QD
     Route: 048
     Dates: start: 201312
  4. ANTABUSE [Suspect]
     Active Substance: DISULFIRAM
     Dosage: 1000 MG, QW
     Route: 048
     Dates: start: 201312

REACTIONS (1)
  - Depersonalisation [Recovered/Resolved]

NARRATIVE: CASE EVENT DATE: 20140721
